FAERS Safety Report 8109466-7 (Version None)
Quarter: 2012Q1

REPORT INFORMATION
  Report Type: 
  Country: None (occurrence: None)
  Receive Date: 20120202
  Receipt Date: 20120127
  Transmission Date: 20120608
  Serious: Yes (Death, Hospitalization, Other)
  Sender: FDA-Public Use
  Company Number: JP-ABBOTT-12P-087-0893224-00

PATIENT
  Sex: Male

DRUGS (7)
  1. HUMIRA [Suspect]
     Indication: RHEUMATOID ARTHRITIS
     Route: 058
     Dates: start: 20090605, end: 20110801
  2. ABATACEPT [Concomitant]
     Indication: RHEUMATOID ARTHRITIS
     Dates: start: 20110801
  3. MIZORIBINE [Concomitant]
     Indication: RHEUMATOID ARTHRITIS
     Dates: start: 20090713, end: 20110801
  4. PREDNISOLONE [Concomitant]
     Indication: RHEUMATOID ARTHRITIS
     Route: 048
     Dates: start: 20110509
  5. TACROLIMUS [Concomitant]
     Indication: RHEUMATOID ARTHRITIS
     Dates: start: 20100301, end: 20110801
  6. TRIMETHOPRIM + SULFAMETHOXAZOLE [Concomitant]
     Indication: INFECTION PROPHYLAXIS
     Dates: start: 20090605, end: 20111121
  7. FEBUXOSTAT [Concomitant]
     Indication: HYPERURICAEMIA
     Dates: start: 20110606

REACTIONS (12)
  - C-REACTIVE PROTEIN INCREASED [None]
  - INTERSTITIAL LUNG DISEASE [None]
  - DYSPNOEA [None]
  - CARDIAC ARREST [None]
  - HAEMOPTYSIS [None]
  - INFECTION [None]
  - DYSPNOEA EXERTIONAL [None]
  - RESPIRATORY FAILURE [None]
  - RENAL DISORDER [None]
  - MYOCARDIAL INFARCTION [None]
  - ELECTROCARDIOGRAM ST SEGMENT ELEVATION [None]
  - RESPIRATORY DISORDER [None]
